FAERS Safety Report 4984925-4 (Version None)
Quarter: 2006Q2

REPORT INFORMATION
  Report Type: 
  Country: None (occurrence: None)
  Receive Date: 20060427
  Receipt Date: 20060406
  Transmission Date: 20061013
  Serious: Yes (Death)
  Sender: FDA-Public Use
  Company Number: KR-JNJFOC-20060400002

PATIENT
  Sex: Male
  Weight: 69 kg

DRUGS (13)
  1. SPORANOX [Suspect]
     Route: 042
     Dates: start: 20060303, end: 20060310
  2. SPORANOX [Suspect]
     Route: 042
     Dates: start: 20060303, end: 20060310
  3. SPORANOX [Suspect]
     Route: 042
     Dates: start: 20060303, end: 20060310
  4. TEICOPLANIN [Concomitant]
     Route: 042
  5. TEICOPLANIN [Concomitant]
     Route: 042
  6. ISEPACIN [Concomitant]
     Route: 042
  7. ISEPACIN [Concomitant]
     Route: 042
  8. IMIPENEM [Concomitant]
     Route: 042
  9. IMIPENEM [Concomitant]
     Route: 042
  10. AMIKACIN SULFATE [Concomitant]
     Route: 042
  11. AMIKACIN SULFATE [Concomitant]
     Route: 042
  12. VANCOMYCIN [Concomitant]
     Route: 042
  13. VANCOMYCIN [Concomitant]
     Route: 042

REACTIONS (12)
  - BLOOD CREATININE INCREASED [None]
  - CONDITION AGGRAVATED [None]
  - DRUG INEFFECTIVE [None]
  - ENTEROCOCCAL INFECTION [None]
  - ENTEROCOCCAL SEPSIS [None]
  - FEBRILE NEUTROPENIA [None]
  - HEPATOTOXICITY [None]
  - HYPERNATRAEMIA [None]
  - MULTI-ORGAN FAILURE [None]
  - PNEUMONIA [None]
  - SEPSIS [None]
  - STOMATITIS [None]
